FAERS Safety Report 14391398 (Version 1)
Quarter: 2018Q1

REPORT INFORMATION
  Report Type: Spontaneous
  Country: IL (occurrence: IL)
  Receive Date: 20180116
  Receipt Date: 20180116
  Transmission Date: 20180509
  Serious: Yes (Other)
  Sender: FDA-Public Use
  Company Number: IL-VISTAPHARM, INC.-VER201801-000036

PATIENT
  Sex: Female

DRUGS (1)
  1. NYSTATIN. [Suspect]
     Active Substance: NYSTATIN
     Indication: VULVOVAGINAL CANDIDIASIS
     Route: 067

REACTIONS (2)
  - Vulvovaginitis [Recovered/Resolved]
  - Condition aggravated [Recovered/Resolved]
